FAERS Safety Report 25603106 (Version 1)
Quarter: 2025Q3

REPORT INFORMATION
  Report Type: Spontaneous
  Country: IR (occurrence: IR)
  Receive Date: 20250724
  Receipt Date: 20250724
  Transmission Date: 20251021
  Serious: Yes (Death, Hospitalization, Other)
  Sender: AZURITY PHARMACEUTICALS
  Company Number: IR-AZURITY PHARMACEUTICALS, INC.-AZR202507-002216

PATIENT
  Age: 6 Year
  Sex: Female

DRUGS (5)
  1. METHOTREXATE [Suspect]
     Active Substance: METHOTREXATE
     Indication: Acute lymphocytic leukaemia
     Dosage: 2000 MG/M2
     Route: 065
  2. ASPARAGINASE [Suspect]
     Active Substance: ASPARAGINASE
     Indication: Acute lymphocytic leukaemia
     Dosage: 10000 U/M2
     Route: 065
  3. VINCRISTINE [Suspect]
     Active Substance: VINCRISTINE
     Indication: Acute lymphocytic leukaemia
     Dosage: 1.5MG/M2, DAILY
     Route: 065
  4. CYCLOPHOSPHAMIDE [Suspect]
     Active Substance: CYCLOPHOSPHAMIDE
     Indication: Acute lymphocytic leukaemia
     Dosage: 1000 MG/M2, DAILY
     Route: 065
  5. CYTARABINE [Suspect]
     Active Substance: CYTARABINE
     Indication: Acute lymphocytic leukaemia
     Dosage: 3 MG/M2
     Route: 065

REACTIONS (10)
  - Metastases to meninges [Fatal]
  - Wernicke^s encephalopathy [Unknown]
  - Sepsis [Fatal]
  - Pancytopenia [Fatal]
  - Candida infection [Fatal]
  - Rash maculo-papular [Unknown]
  - Weight fluctuation [Unknown]
  - Appetite disorder [Unknown]
  - Vomiting [Unknown]
  - Nausea [Unknown]
